FAERS Safety Report 9109917 (Version 2)
Quarter: 2013Q2

REPORT INFORMATION
  Report Type: Report from Study
  Country: JP (occurrence: JP)
  Receive Date: 20130222
  Receipt Date: 20130418
  Transmission Date: 20140414
  Serious: Yes (Other)
  Sender: FDA-Public Use
  Company Number: JP-MERCK-1208JPN007329

PATIENT
  Age: 40 Year
  Sex: Male

DRUGS (2)
  1. ISENTRESS TABLETS 400MG [Suspect]
     Indication: HIV INFECTION
     Dosage: 800 MG, DAILY
     Route: 048
     Dates: start: 20111025
  2. TRUVADA [Suspect]
     Indication: HIV INFECTION
     Dosage: 1 DF, DAILY
     Route: 048
     Dates: start: 20111025, end: 20111214

REACTIONS (1)
  - Blood creatine phosphokinase increased [Recovered/Resolved]
